FAERS Safety Report 22215274 (Version 1)
Quarter: 2023Q2

REPORT INFORMATION
  Report Type: Spontaneous
  Country: US (occurrence: US)
  Receive Date: 20230415
  Receipt Date: 20230415
  Transmission Date: 20230722
  Serious: No
  Sender: FDA-Public Use
  Company Number: US-JNJFOC-20191023689

PATIENT
  Age: 81 Year
  Sex: Female

DRUGS (1)
  1. IMODIUM MULTI-SYMPTOM RELIEF [Suspect]
     Active Substance: DIMETHICONE\LOPERAMIDE HYDROCHLORIDE
     Indication: Gastrointestinal disorder
     Dosage: CUT THE CAPLETS IN HALF BUT GIVES BOTH OF THEM TO HER WHEN SHE NEEDS IT
     Route: 048
     Dates: end: 20191015

REACTIONS (3)
  - Blood pressure increased [Not Recovered/Not Resolved]
  - Gastrointestinal disorder [Not Recovered/Not Resolved]
  - Wrong technique in product usage process [Unknown]

NARRATIVE: CASE EVENT DATE: 20191015
